FAERS Safety Report 21919306 (Version 1)
Quarter: 2023Q1

REPORT INFORMATION
  Report Type: Spontaneous
  Country: JP (occurrence: JP)
  Receive Date: 20230127
  Receipt Date: 20230127
  Transmission Date: 20230417
  Serious: Yes (Other)
  Sender: FDA-Public Use
  Company Number: JP-KYOWAKIRIN-2022AKK018477

PATIENT

DRUGS (10)
  1. PEGFILGRASTIM [Suspect]
     Active Substance: PEGFILGRASTIM
     Indication: Colony stimulating factor therapy
     Dosage: 3.6 MG, 1X/2 WEEKS
     Route: 058
     Dates: start: 20190708
  2. LENOGRASTIM [Concomitant]
     Active Substance: LENOGRASTIM
     Indication: Product used for unknown indication
     Dosage: 100 UG, DOSING FREQUENCY: EVERY DAY DURATION OF ADMINISTRATION: 2 DAYS
     Dates: start: 20190913, end: 20190914
  3. ALOXI [Concomitant]
     Active Substance: PALONOSETRON HYDROCHLORIDE
     Indication: Product used for unknown indication
     Dosage: 0.75 MG, 1X/2 WEEKS, DURATION OF ADMINISTRATION: DAY1
     Route: 065
     Dates: start: 20190705, end: 20190816
  4. DEXAMETHASONE SODIUM PHOSPHATE [Concomitant]
     Active Substance: DEXAMETHASONE SODIUM PHOSPHATE
     Indication: Product used for unknown indication
     Dosage: 3.3?X3, 1X/2 WEEKS, DURATION OF ADMINISTRATION: DAY1
     Dates: start: 20190705, end: 20190816
  5. DEXAMETHASONE SODIUM PHOSPHATE [Concomitant]
     Active Substance: DEXAMETHASONE SODIUM PHOSPHATE
     Dosage: 3.3?X2, 1X/2 WEEKS, DURATION OF REGIMEN: DAY1
     Dates: start: 20190830, end: 20191025
  6. EPIRUBICIN HYDROCHLORIDE [Concomitant]
     Active Substance: EPIRUBICIN HYDROCHLORIDE
     Indication: Product used for unknown indication
     Dosage: 90 MG/M2, 1X/2 WEEKS, DURATION OF ADMINISTRATION: DAY1
     Route: 065
     Dates: start: 20190705, end: 20190816
  7. CYCLOPHOSPHAMIDE [Concomitant]
     Active Substance: CYCLOPHOSPHAMIDE
     Indication: Product used for unknown indication
     Dosage: 600 MG/M2, 1X/2 WEEKS, DURATION OF ADMINISTRATION: DAY1
     Route: 065
     Dates: start: 20190705, end: 20190816
  8. DECADRON [Concomitant]
     Active Substance: DEXAMETHASONE
     Indication: Product used for unknown indication
     Dosage: 4 MG, 2T/2, DECADRON IS ADMINISTERED DAILY UNTIL DAY  OF THE DD-EC THERAPY AND DAILY UNTIL DAY 3 OF
     Route: 048
     Dates: start: 20190705, end: 20191027
  9. MAGNESIUM OXIDE [Concomitant]
     Active Substance: MAGNESIUM OXIDE
     Indication: Product used for unknown indication
     Dosage: 330 MG, 3T/3, DECADRON IS ADMINISTERED DAILY UNTIL DAY 4 OF THE DD-EC THERAPY AND DAILY UNTIL DAY 3
     Dates: start: 20190705, end: 20191027
  10. DOCETAXEL [Concomitant]
     Active Substance: DOCETAXEL
     Indication: Product used for unknown indication
     Dosage: 75 MG/M2, 1X/2 WEEKS, DURATION OF ADMINISTRATION: DAY1
     Route: 065
     Dates: start: 20190830, end: 20191025

REACTIONS (1)
  - Neutropenia [Recovered/Resolved]

NARRATIVE: CASE EVENT DATE: 20190913
